FAERS Safety Report 7451390-7 (Version None)
Quarter: 2011Q2

REPORT INFORMATION
  Report Type: 
  Country: None (occurrence: None)
  Receive Date: 20110502
  Receipt Date: 20110420
  Transmission Date: 20111010
  Serious: Yes (Hospitalization)
  Sender: FDA-Public Use
  Company Number: JP-SANOFI-AVENTIS-200910472JP

PATIENT
  Age: 86 Year
  Sex: Female
  Weight: 47.4 kg

DRUGS (5)
  1. FUROSEMIDE [Suspect]
     Dosage: DOSE AS USED: 20MG HALF TAB DOSE UNIT: 20 MG
     Route: 048
     Dates: start: 20080101, end: 20081001
  2. ANTIHYPERTENSIVES [Concomitant]
  3. SHAKUYAKUKANZOUTOU [Suspect]
     Route: 065
     Dates: start: 20080101, end: 20081001
  4. SHAKUYAKUKANZOUTOU [Suspect]
     Route: 065
     Dates: start: 20080101, end: 20081001
  5. LICORICE [Suspect]
     Route: 065
     Dates: start: 20050101, end: 20081001

REACTIONS (14)
  - BLOOD PRESSURE SYSTOLIC INCREASED [None]
  - HYPOREFLEXIA [None]
  - BRADYCARDIA [None]
  - METABOLIC ALKALOSIS [None]
  - FALL [None]
  - LUMBAR SPINAL STENOSIS [None]
  - BLOOD CREATINE PHOSPHOKINASE INCREASED [None]
  - INTERVERTEBRAL DISC PROTRUSION [None]
  - GAIT DISTURBANCE [None]
  - MUSCULAR WEAKNESS [None]
  - HYPOKALAEMIA [None]
  - TREMOR [None]
  - HYPOCHLORAEMIA [None]
  - PSEUDOALDOSTERONISM [None]
